FAERS Safety Report 9714738 (Version 1)
Quarter: 2013Q4

REPORT INFORMATION
  Report Type: Spontaneous
  Country: US (occurrence: US)
  Receive Date: 20131126
  Receipt Date: 20131126
  Transmission Date: 20140711
  Serious: Yes (Hospitalization)
  Sender: FDA-Public Use
  Company Number: US-B.I. PHARMACEUTICALS,INC./RIDGEFIELD-2013-BI-38567BP

PATIENT
  Age: 64 Year
  Sex: Male
  Weight: 77 kg

DRUGS (10)
  1. SPIRIVA [Suspect]
     Indication: CHRONIC OBSTRUCTIVE PULMONARY DISEASE
     Dosage: 18 MCG
     Route: 055
     Dates: start: 2011
  2. METOPROLOL TARTRATE [Concomitant]
     Route: 048
  3. KLOR-CON [Concomitant]
     Dosage: 20 MEQ
     Route: 048
  4. CAPTOPRIL [Concomitant]
     Route: 048
  5. GLIPIZIDE [Concomitant]
     Dosage: 5 MG
     Route: 048
  6. RANITIDINE [Concomitant]
     Route: 048
  7. PREDNISONE [Concomitant]
     Route: 048
  8. SIMVASTATIN [Concomitant]
     Dosage: 80 MG
     Route: 048
  9. FUROSEMIDE [Concomitant]
     Route: 048
  10. LYRICA [Concomitant]
     Route: 048

REACTIONS (2)
  - Dyspnoea [Recovered/Resolved]
  - Dyspnoea [Recovered/Resolved]
